FAERS Safety Report 18369028 (Version 1)
Quarter: 2020Q4

REPORT INFORMATION
  Report Type: Other
  Country: GB (occurrence: GB)
  Receive Date: 20201011
  Receipt Date: 20201011
  Transmission Date: 20210114
  Serious: Yes (Life-Threatening, Disabling)
  Sender: FDA-Public Use
  Company Number: GB-IPCA LABORATORIES LIMITED-IPC-2020-GB-003215

PATIENT

DRUGS (2)
  1. ALLOPURINOL TABLET [Suspect]
     Active Substance: ALLOPURINOL
     Indication: GOUT
     Dosage: TAKE TWO DAILY FOR 2 WEEKS THEN THREE DAILY FOR TWO WEEKS THEN FOR BLOOD TEST.
     Route: 065
     Dates: start: 20200706
  2. COLCHICINE. [Concomitant]
     Active Substance: COLCHICINE
     Indication: PRODUCT USED FOR UNKNOWN INDICATION
     Dosage: 1500 MICROGRAM, QD
     Route: 065
     Dates: start: 202001, end: 20200818

REACTIONS (1)
  - Dyspnoea [Recovering/Resolving]
